FAERS Safety Report 23033749 (Version 1)
Quarter: 2023Q4

REPORT INFORMATION
  Report Type: Spontaneous
  Country: US (occurrence: None)
  Receive Date: 20231004
  Receipt Date: 20231004
  Transmission Date: 20240109
  Serious: Yes (Other)
  Sender: FDA-Public Use
  Company Number: None

PATIENT
  Age: 72 Year
  Sex: Female

DRUGS (1)
  1. RYBELSUS [Suspect]
     Active Substance: SEMAGLUTIDE

REACTIONS (6)
  - Constipation [None]
  - Decreased appetite [None]
  - Tachycardia [None]
  - Nausea [None]
  - Eructation [None]
  - Thyroid hormones increased [None]

NARRATIVE: CASE EVENT DATE: 20230915
